FAERS Safety Report 15104337 (Version 1)
Quarter: 2018Q3

REPORT INFORMATION
  Report Type: Spontaneous
  Country: FI (occurrence: FI)
  Receive Date: 20180703
  Receipt Date: 20180703
  Transmission Date: 20181010
  Serious: No
  Sender: FDA-Public Use
  Company Number: FI-AKRON, INC.-2051282

PATIENT
  Age: 0 Day
  Sex: Male
  Weight: 2 kg

DRUGS (1)
  1. LORAZEPAM INJECTION CIV [Suspect]
     Active Substance: LORAZEPAM
     Route: 030

REACTIONS (9)
  - Polydactyly [Unknown]
  - Gastrointestinal tube insertion [Unknown]
  - Cardiac septal defect [Unknown]
  - Low birth weight baby [Unknown]
  - Poor feeding infant [Unknown]
  - Heterotaxia [Unknown]
  - Plagiocephaly [Unknown]
  - Premature baby [Unknown]
  - Congenital renal disorder [Unknown]

NARRATIVE: CASE EVENT DATE: 20171106
